FAERS Safety Report 11486670 (Version 2)
Quarter: 2015Q3

REPORT INFORMATION
  Report Type: Spontaneous
  Country: US (occurrence: US)
  Receive Date: 20150910
  Receipt Date: 20150930
  Transmission Date: 20151125
  Serious: No
  Sender: FDA-Public Use
  Company Number: US-PFIZER INC-2015285510

PATIENT
  Age: 76 Year
  Sex: Female
  Weight: 114 kg

DRUGS (1)
  1. SUTENT [Suspect]
     Active Substance: SUNITINIB MALATE
     Indication: RENAL CELL CARCINOMA
     Dosage: 25 MG, DAILY FOR 28 DAYS THAN 14 OFF
     Route: 048
     Dates: start: 20141223, end: 2015

REACTIONS (2)
  - Disease progression [Unknown]
  - Renal cell carcinoma [Unknown]
